FAERS Safety Report 5684075-8 (Version None)
Quarter: 2008Q1

REPORT INFORMATION
  Report Type: 
  Country: None (occurrence: None)
  Receive Date: 20080328
  Receipt Date: 20070321
  Transmission Date: 20080703
  Serious: Yes (Hospitalization)
  Sender: FDA-Public Use
  Company Number: US-AMGEN-US149474

PATIENT
  Sex: Female
  Weight: 63.1 kg

DRUGS (11)
  1. NEULASTA [Suspect]
     Indication: CHEMOTHERAPY
     Route: 058
     Dates: start: 20050623, end: 20050623
  2. EPIRUBICIN HYDROCHLORIDE [Concomitant]
     Dates: start: 20050621, end: 20050907
  3. CYTOXAN [Concomitant]
     Dates: start: 20050621, end: 20050907
  4. FLUOROURACIL [Concomitant]
     Dates: start: 20050621, end: 20050907
  5. ZOCOR [Concomitant]
     Dates: start: 20050404
  6. LEXAPRO [Concomitant]
     Dates: start: 20040801
  7. FISH OIL [Concomitant]
     Dates: start: 20050601
  8. NEXIUM [Concomitant]
     Dates: start: 20050725
  9. ROLAIDS [Concomitant]
     Dates: start: 20050725
  10. ACYCLOVIR [Concomitant]
     Dates: start: 20050720
  11. INDERAL [Concomitant]
     Dates: start: 20050720

REACTIONS (1)
  - FEBRILE NEUTROPENIA [None]
